FAERS Safety Report 11636272 (Version 1)
Quarter: 2015Q4

REPORT INFORMATION
  Report Type: Report from Study
  Country: IE (occurrence: IE)
  Receive Date: 20151016
  Receipt Date: 20151016
  Transmission Date: 20160304
  Serious: Yes (Life-Threatening, Hospitalization)
  Sender: FDA-Public Use
  Company Number: IE-CELGENE-IRL-2015073318

PATIENT
  Age: 76 Year
  Sex: Male

DRUGS (21)
  1. COTRIMOXAZOLE [Concomitant]
     Active Substance: SULFAMETHOXAZOLE\TRIMETHOPRIM
     Indication: ANTIBIOTIC PROPHYLAXIS
     Route: 048
     Dates: start: 20150512
  2. ACICLOVIR [Concomitant]
     Active Substance: ACYCLOVIR
     Indication: ANTIVIRAL PROPHYLAXIS
     Route: 048
     Dates: start: 20150619
  3. MEROPENEM. [Concomitant]
     Active Substance: MEROPENEM
     Indication: RESPIRATORY TRACT INFECTION
     Dosage: 10 MILLIGRAM
     Route: 041
     Dates: start: 20150624, end: 20150713
  4. BUSCOPAN [Concomitant]
     Active Substance: BUTYLSCOPOLAMINE BROMIDE
     Indication: ENTERITIS
     Route: 048
     Dates: start: 20150622
  5. PARACETAMOL [Concomitant]
     Active Substance: ACETAMINOPHEN
     Indication: PAIN
     Dosage: 4 DROPS
     Route: 048
     Dates: start: 20150618
  6. ACIDOPHILUS [Concomitant]
     Active Substance: LACTOBACILLUS ACIDOPHILUS
     Indication: DIARRHOEA
     Route: 048
     Dates: start: 20150608
  7. BORTEZOMIB [Suspect]
     Active Substance: BORTEZOMIB
     Indication: PLASMA CELL MYELOMA
     Route: 058
     Dates: start: 20150407, end: 20150417
  8. OCTREOTIDE. [Concomitant]
     Active Substance: OCTREOTIDE
     Indication: DIARRHOEA
     Dosage: 1100 MILLIGRAM
     Route: 058
     Dates: start: 20150704
  9. COMBIVENT [Concomitant]
     Active Substance: ALBUTEROL SULFATE\IPRATROPIUM BROMIDE
     Indication: RESPIRATORY TRACT INFECTION
     Dosage: 300 MILLILITER
     Route: 065
     Dates: start: 20150623
  10. LANSOPRAZOLE. [Concomitant]
     Active Substance: LANSOPRAZOLE
     Indication: GASTRIC PH DECREASED
     Route: 048
     Dates: start: 20150604
  11. RIFAXIMIN [Concomitant]
     Active Substance: RIFAXIMIN
     Indication: DIARRHOEA
     Route: 048
     Dates: start: 20150612, end: 20150708
  12. DEXAMETHASONE. [Suspect]
     Active Substance: DEXAMETHASONE
     Indication: PLASMA CELL MYELOMA
     Route: 048
     Dates: start: 20150407, end: 20150418
  13. DEXAMETHASONE. [Suspect]
     Active Substance: DEXAMETHASONE
     Dosage: 600 MILLIGRAM/KILOGRAM
     Route: 041
     Dates: start: 20150708
  14. ALBUMIN [Concomitant]
     Active Substance: ALBUMIN (HUMAN)
     Indication: HYPOALBUMINAEMIA
     Route: 041
     Dates: start: 20150501
  15. PARACETAMOL [Concomitant]
     Active Substance: ACETAMINOPHEN
     Indication: PYREXIA
     Dosage: 30 MILLIGRAM
     Route: 041
     Dates: start: 20150618
  16. LOPERAMIDE [Concomitant]
     Active Substance: LOPERAMIDE
     Indication: DIARRHOEA
     Route: 048
     Dates: start: 20150615
  17. SERTRALINE [Concomitant]
     Active Substance: SERTRALINE HYDROCHLORIDE
     Indication: DEPRESSION
     Route: 048
     Dates: start: 20150627
  18. QUESTRAN [Concomitant]
     Active Substance: CHOLESTYRAMINE
     Indication: DYSLIPIDAEMIA
     Dosage: 3 GRAM
     Route: 048
     Dates: start: 20150627, end: 20150716
  19. ELTROXIN [Concomitant]
     Active Substance: LEVOTHYROXINE
     Indication: HYPOTHYROIDISM
     Dosage: 480 MILLIGRAM
     Route: 048
     Dates: start: 20150611
  20. REVLIMID [Suspect]
     Active Substance: LENALIDOMIDE
     Indication: PLASMA CELL MYELOMA
     Route: 048
     Dates: start: 20150407, end: 20150419
  21. NATURAL TEARS [Concomitant]
     Active Substance: POLYVINYL ALCOHOL\POVIDONE
     Indication: DRY EYE
     Route: 047
     Dates: start: 20150605

REACTIONS (2)
  - Respiratory arrest [Recovered/Resolved]
  - Enteritis [Not Recovered/Not Resolved]

NARRATIVE: CASE EVENT DATE: 20150707
